FAERS Safety Report 19293195 (Version 1)
Quarter: 2021Q2

REPORT INFORMATION
  Report Type: Spontaneous
  Country: US (occurrence: US)
  Receive Date: 20210522
  Receipt Date: 20210522
  Transmission Date: 20210717
  Serious: Yes (Disabling)
  Sender: FDA-Public Use
  Company Number: None

PATIENT
  Age: 42 Year
  Sex: Female
  Weight: 69.75 kg

DRUGS (4)
  1. LEVOTHYROXINE. [Concomitant]
     Active Substance: LEVOTHYROXINE
  2. VITAMIN D3 [Concomitant]
     Active Substance: CHOLECALCIFEROL
  3. PRAVASTATIN. [Concomitant]
     Active Substance: PRAVASTATIN
  4. VENLAFAXINE HYDROCHLORIDE. [Suspect]
     Active Substance: VENLAFAXINE HYDROCHLORIDE
     Indication: DEPRESSION
     Dosage: ?          QUANTITY:270 TABLET(S);OTHER FREQUENCY:TAKE 3 TABLETS DAI;?
     Route: 048
     Dates: start: 20060101

REACTIONS (13)
  - Paraesthesia [None]
  - Depression [None]
  - Peripheral vascular disorder [None]
  - Abnormal dreams [None]
  - Palpitations [None]
  - Pollakiuria [None]
  - Blood cholesterol increased [None]
  - Hypertension [None]
  - Loss of libido [None]
  - Urinary retention [None]
  - Withdrawal syndrome [None]
  - Nausea [None]
  - Temperature intolerance [None]
